FAERS Safety Report 7618676-4 (Version None)
Quarter: 2011Q3

REPORT INFORMATION
  Report Type: 
  Country: None (occurrence: None)
  Receive Date: 20110718
  Receipt Date: 20110628
  Transmission Date: 20111222
  Serious: No
  Sender: FDA-Public Use
  Company Number: US-ROXANE LABORATORIES, INC.-2011-RO-00718RO

PATIENT
  Sex: Female

DRUGS (7)
  1. PREDNISONE [Concomitant]
     Dosage: 7.5 MG
     Dates: start: 20020101, end: 20110328
  2. PLAQUENIL [Concomitant]
     Dosage: 200 MG
     Dates: start: 20030101
  3. MYCOPHENOLATE MOFETIL [Suspect]
     Dosage: 1000 MG
     Route: 048
     Dates: start: 20110517
  4. BYSTOLIC [Concomitant]
     Dosage: 5 MG
     Dates: start: 20110201
  5. MYCOPHENOLATE MOFETIL [Suspect]
     Indication: LUPUS NEPHRITIS
     Dosage: 2500 MG
     Route: 048
     Dates: end: 20110328
  6. PREDNISONE [Concomitant]
     Dates: start: 20110328
  7. LISINOPRIL [Concomitant]
     Dosage: 40 MG
     Dates: start: 20070101

REACTIONS (2)
  - PROTEIN URINE PRESENT [None]
  - DRUG INEFFECTIVE FOR UNAPPROVED INDICATION [None]
